FAERS Safety Report 8709247 (Version 3)
Quarter: 2012Q4

REPORT INFORMATION
  Report Type: 
  Country: US (occurrence: US)
  Receive Date: 20120806
  Receipt Date: 20121130
  Transmission Date: 20130627
  Serious: Yes (Hospitalization)
  Sender: FDA-Public Use
  Company Number: US-ACTELION-A-NJ2012-69358

PATIENT
  Age: 57 Year
  Sex: Female

DRUGS (2)
  1. TRACLEER [Suspect]
     Indication: PULMONARY ARTERIAL HYPERTENSION
     Dosage: UNK
     Route: 048
  2. ASPIRIN [Concomitant]

REACTIONS (7)
  - Mechanical ventilation [Recovered/Resolved]
  - Pneumonia [Unknown]
  - Aspiration [Recovered/Resolved]
  - Dysphagia [Recovered/Resolved]
  - Pain in extremity [Unknown]
  - Dyspnoea [Unknown]
  - Oedema [Unknown]
